FAERS Safety Report 16846851 (Version 2)
Quarter: 2019Q4

REPORT INFORMATION
  Report Type: Spontaneous
  Country: US (occurrence: US)
  Receive Date: 20190924
  Receipt Date: 20191019
  Transmission Date: 20200122
  Serious: Yes (Death, Other)
  Sender: FDA-Public Use
  Company Number: US-009507513-1909USA007400

PATIENT
  Sex: Male

DRUGS (6)
  1. INSULIN [Concomitant]
     Active Substance: INSULIN NOS
  2. OMEGA-3 MARINE TRIGLYCERIDES [Concomitant]
     Active Substance: FISH OIL
  3. VITAMIN D (UNSPECIFIED) [Concomitant]
     Active Substance: VITAMIN D NOS
  4. CALCIUM (UNSPECIFIED) [Concomitant]
     Active Substance: CALCIUM
  5. CENTRUM SILVER [Concomitant]
     Active Substance: MINERALS\VITAMINS
  6. KEYTRUDA [Suspect]
     Active Substance: PEMBROLIZUMAB
     Indication: NON-SMALL CELL LUNG CANCER STAGE IV
     Dosage: UNK UNK, Q3W
     Route: 042
     Dates: start: 20190710, end: 20190828

REACTIONS (3)
  - Blood iron decreased [Unknown]
  - Malignant neoplasm progression [Fatal]
  - Central venous catheterisation [Unknown]

NARRATIVE: CASE EVENT DATE: 2019
